FAERS Safety Report 7109139-3 (Version None)
Quarter: 2010Q4

REPORT INFORMATION
  Report Type: 
  Country: None (occurrence: None)
  Receive Date: 20101117
  Receipt Date: 20101115
  Transmission Date: 20110411
  Serious: Yes (Death, Other)
  Sender: FDA-Public Use
  Company Number: GB-PFIZER INC-2010148949

PATIENT
  Age: 50 Year
  Sex: Male

DRUGS (1)
  1. SUNITINIB MALATE [Suspect]
     Indication: NEOPLASM MALIGNANT
     Dosage: 50 MG, UNK
     Dates: start: 20100401, end: 20100901

REACTIONS (4)
  - BLOOD PRESSURE INADEQUATELY CONTROLLED [None]
  - DEATH [None]
  - DISEASE PROGRESSION [None]
  - NEOPLASM MALIGNANT [None]
